FAERS Safety Report 10260887 (Version 1)
Quarter: 2014Q2

REPORT INFORMATION
  Report Type: Spontaneous
  Country: DE (occurrence: DE)
  Receive Date: 20140626
  Receipt Date: 20140626
  Transmission Date: 20141212
  Serious: Yes (Congenital Anomaly, Other)
  Sender: FDA-Public Use
  Company Number: PHHY2014DE077567

PATIENT
  Sex: Male
  Weight: 3.04 kg

DRUGS (7)
  1. VALSARTAN [Suspect]
     Dosage: MATERNAL DOSE 1 DF QD (160 MG)
     Route: 064
     Dates: start: 20130513, end: 20131103
  2. BISOPROLOL [Concomitant]
     Dosage: MATERNAL DOSE 1 DF QD (5 MG)
     Route: 064
  3. LAMUNA [Concomitant]
     Dosage: MATERNAL DOSE 1 DF QD (0.15 MG)
     Route: 064
  4. LAMUNA [Concomitant]
     Dosage: MATERNAL DOSE 1 DF QD (0.02 MG)
     Route: 064
  5. DOPEGYT [Concomitant]
     Dosage: MATERNAL DOSE 1 DF QD(250 MG)
     Route: 064
  6. INSULIN [Concomitant]
     Dosage: MATERNAL DOSE: UNKNOWN
     Route: 064
  7. FOLIO [Concomitant]
     Dosage: MATERNAL DOSE 1 DF DAILY (0.4 MG)
     Route: 064

REACTIONS (2)
  - Congenital renal disorder [Unknown]
  - Atrial septal defect [Unknown]
